FAERS Safety Report 6424502-1 (Version None)
Quarter: 2009Q4

REPORT INFORMATION
  Report Type: 
  Country: None (occurrence: None)
  Receive Date: 20091103
  Receipt Date: 20091022
  Transmission Date: 20100525
  Serious: Yes (Other)
  Sender: FDA-Public Use
  Company Number: ES-ROCHE-664163

PATIENT
  Age: 68 Year
  Sex: Male

DRUGS (3)
  1. TAMIFLU [Suspect]
     Route: 048
     Dates: start: 20090818, end: 20090820
  2. LEVOFLOXACINO NORMON [Suspect]
     Indication: PNEUMONIA
     Dosage: FREQUENCY: DAY
     Route: 042
     Dates: start: 20090818, end: 20090819
  3. PERFALGAN [Concomitant]
     Indication: PYREXIA

REACTIONS (3)
  - HYPERBILIRUBINAEMIA [None]
  - HYPERTRANSAMINASAEMIA [None]
  - URTICARIA [None]
